FAERS Safety Report 8810104 (Version 1)
Quarter: 2012Q4

REPORT INFORMATION
  Report Type: 
  Country: US (occurrence: US)
  Receive Date: 20120926
  Receipt Date: 20120926
  Transmission Date: 20130627
  Serious: No
  Sender: FDA-Public Use
  Company Number: US-ASTRAZENECA-2012SE73695

PATIENT
  Age: 48 Year
  Sex: Female
  Weight: 88.5 kg

DRUGS (7)
  1. NEXIUM [Suspect]
     Indication: GASTROOESOPHAGEAL REFLUX DISEASE
     Route: 048
  2. LAMICTAL [Concomitant]
     Indication: ANXIETY
  3. CYMBALTA [Concomitant]
     Indication: ANXIETY
  4. CYMBALTA [Concomitant]
     Indication: PAIN
  5. SIMVASTATIN [Concomitant]
     Indication: BLOOD CHOLESTEROL INCREASED
  6. METOPROLOL SUCCINATE [Concomitant]
     Indication: TACHYCARDIA
  7. XANAX [Concomitant]
     Indication: ANXIETY

REACTIONS (4)
  - Nasopharyngitis [Unknown]
  - Off label use [Unknown]
  - Off label use [Unknown]
  - Gastrooesophageal reflux disease [Unknown]
